FAERS Safety Report 22666892 (Version 13)
Quarter: 2024Q2

REPORT INFORMATION
  Report Type: Report from Study
  Country: CA (occurrence: CA)
  Receive Date: 20230704
  Receipt Date: 20240412
  Transmission Date: 20240716
  Serious: Yes (Other)
  Sender: FDA-Public Use
  Company Number: CA-KOREA IPSEN Pharma-2023-10415

PATIENT
  Age: 49 Year
  Sex: Female

DRUGS (5)
  1. LANREOTIDE ACETATE [Suspect]
     Active Substance: LANREOTIDE ACETATE
     Indication: Gastroenteropancreatic neuroendocrine tumour disease
     Dosage: VIA DEEP SUBCUTANEOUS ROUTE
     Route: 058
     Dates: start: 20230406
  2. DEXILANT [Concomitant]
     Active Substance: DEXLANSOPRAZOLE
  3. AMITRIPTYLINE [Concomitant]
     Active Substance: AMITRIPTYLINE
  4. LORAZEPAM [Concomitant]
     Active Substance: LORAZEPAM
  5. ZOPICLONE [Concomitant]
     Active Substance: ZOPICLONE

REACTIONS (67)
  - Metastases to spine [Unknown]
  - Malignant neoplasm progression [Unknown]
  - Loss of personal independence in daily activities [Not Recovered/Not Resolved]
  - Lip oedema [Recovered/Resolved]
  - Oral herpes [Recovered/Resolved]
  - Trismus [Recovered/Resolved]
  - Chapped lips [Recovered/Resolved]
  - Pain [Unknown]
  - Cholelithiasis [Not Recovered/Not Resolved]
  - Injection site pain [Unknown]
  - Muscle contracture [Unknown]
  - Injection site mass [Not Recovered/Not Resolved]
  - Injection site discomfort [Unknown]
  - Injection site induration [Not Recovered/Not Resolved]
  - Lip blister [Recovered/Resolved]
  - Injection site oedema [Recovering/Resolving]
  - Herpes virus infection [Recovered/Resolved]
  - Nausea [Recovered/Resolved]
  - Feeding disorder [Recovered/Resolved]
  - Pyrexia [Recovered/Resolved]
  - Aphonia [Recovered/Resolved]
  - Bronchitis [Not Recovered/Not Resolved]
  - Sinusitis [Not Recovered/Not Resolved]
  - Cough [Recovering/Resolving]
  - Rhinorrhoea [Recovering/Resolving]
  - Nerve compression [Not Recovered/Not Resolved]
  - Impaired quality of life [Not Recovered/Not Resolved]
  - Diarrhoea [Recovered/Resolved]
  - Constipation [Recovered/Resolved]
  - Limb discomfort [Recovering/Resolving]
  - Pain in extremity [Recovered/Resolved]
  - Back pain [Not Recovered/Not Resolved]
  - Physical disability [Not Recovered/Not Resolved]
  - Mood altered [Not Recovered/Not Resolved]
  - Depressed mood [Unknown]
  - Nasopharyngitis [Recovering/Resolving]
  - Influenza [Not Recovered/Not Resolved]
  - Haematoma [Recovered/Resolved]
  - Migraine [Recovered/Resolved]
  - Headache [Recovering/Resolving]
  - Injection site haemorrhage [Recovered/Resolved]
  - Insomnia [Recovered/Resolved]
  - Vaginal infection [Recovered/Resolved]
  - Pruritus [Recovered/Resolved]
  - Erythema [Recovered/Resolved]
  - Dysphagia [Unknown]
  - Nerve compression [Recovering/Resolving]
  - Musculoskeletal chest pain [Not Recovered/Not Resolved]
  - Insomnia [Unknown]
  - Gastroenteritis [Recovered/Resolved]
  - Acne [Unknown]
  - Oral herpes [Unknown]
  - Hidradenitis [Unknown]
  - Blood pressure increased [Not Recovered/Not Resolved]
  - Dyspnoea [Not Recovered/Not Resolved]
  - Feeling abnormal [Unknown]
  - Hypertension [Not Recovered/Not Resolved]
  - Tremor [Unknown]
  - Asthenia [Unknown]
  - Amnesia [Unknown]
  - Confusional state [Unknown]
  - Libido decreased [Unknown]
  - Dry mouth [Unknown]
  - Alopecia [Unknown]
  - Faeces soft [Recovering/Resolving]
  - Heart rate irregular [Not Recovered/Not Resolved]
  - Frequent bowel movements [Recovering/Resolving]

NARRATIVE: CASE EVENT DATE: 20230409
